FAERS Safety Report 6594462-1 (Version None)
Quarter: 2010Q1

REPORT INFORMATION
  Report Type: 
  Country: None (occurrence: None)
  Receive Date: 20100222
  Receipt Date: 20100120
  Transmission Date: 20100710
  Serious: No
  Sender: FDA-Public Use
  Company Number: US-BAYER-201011088BCC

PATIENT
  Age: 81 Year
  Sex: Female
  Weight: 56 kg

DRUGS (3)
  1. ALEVE [Suspect]
     Indication: ARTHRALGIA
     Dosage: TOTAL DAILY DOSE: 2220 MG  UNIT DOSE: 220 MG
     Route: 048
     Dates: start: 20091201
  2. PREVACID [Concomitant]
     Route: 065
  3. CEPHALEXIN [Concomitant]
     Route: 065

REACTIONS (2)
  - DIZZINESS [None]
  - FEELING DRUNK [None]
